FAERS Safety Report 16115037 (Version 1)
Quarter: 2019Q1

REPORT INFORMATION
  Report Type: Spontaneous
  Country: US (occurrence: US)
  Receive Date: 20190325
  Receipt Date: 20190325
  Transmission Date: 20190418
  Serious: No
  Sender: FDA-Public Use
  Company Number: US-BRISTOL-MYERS SQUIBB COMPANY-BMS-2019-029628

PATIENT
  Sex: Male
  Weight: 68.03 kg

DRUGS (1)
  1. ELIQUIS [Suspect]
     Active Substance: APIXABAN
     Indication: CEREBROVASCULAR ACCIDENT PROPHYLAXIS
     Dosage: UNK
     Route: 065
     Dates: start: 201901

REACTIONS (3)
  - Gait disturbance [Not Recovered/Not Resolved]
  - Tooth disorder [Unknown]
  - Muscular weakness [Not Recovered/Not Resolved]
